FAERS Safety Report 15644706 (Version 1)
Quarter: 2018Q4

REPORT INFORMATION
  Report Type: Spontaneous
  Country: JP (occurrence: JP)
  Receive Date: 20181121
  Receipt Date: 20181121
  Transmission Date: 20190205
  Serious: Yes (Hospitalization)
  Sender: FDA-Public Use
  Company Number: JP-SA-2018SA314858

PATIENT
  Age: 65 Year
  Sex: Female

DRUGS (5)
  1. ELPLAT [Suspect]
     Active Substance: OXALIPLATIN
     Indication: COLON CANCER
     Dosage: UNK
     Route: 041
  2. AVASTIN [Suspect]
     Active Substance: BEVACIZUMAB
     Indication: COLON CANCER
     Dosage: UNK UNK, QD
     Route: 041
  3. AVASTIN [Suspect]
     Active Substance: BEVACIZUMAB
     Dosage: UNK, QD
     Route: 041
  4. ELPLAT [Suspect]
     Active Substance: OXALIPLATIN
     Dosage: UNK, QD
     Route: 041
  5. XELODA [Concomitant]
     Active Substance: CAPECITABINE

REACTIONS (1)
  - Thrombotic microangiopathy [Recovering/Resolving]
